FAERS Safety Report 5372177-5 (Version None)
Quarter: 2007Q2

REPORT INFORMATION
  Report Type: 
  Country: None (occurrence: None)
  Receive Date: 20070627
  Receipt Date: 20070621
  Transmission Date: 20071010
  Serious: Yes (Other)
  Sender: FDA-Public Use
  Company Number: A0659220A

PATIENT
  Age: 53 Year
  Sex: Female

DRUGS (9)
  1. LAMICTAL [Suspect]
     Indication: BIPOLAR DISORDER
     Dosage: 150MG PER DAY
     Route: 048
     Dates: start: 20070501, end: 20070617
  2. CALCIUM CHLORIDE [Concomitant]
  3. SEROQUEL [Concomitant]
  4. LASIX [Concomitant]
  5. VITAMIN B-12 [Concomitant]
  6. ATIVAN [Concomitant]
  7. CATAPRES [Concomitant]
  8. NEXIUM [Concomitant]
  9. DARVOCET [Concomitant]

REACTIONS (2)
  - EXCESSIVE EYE BLINKING [None]
  - RASH [None]
